FAERS Safety Report 26009354 (Version 2)
Quarter: 2025Q4

REPORT INFORMATION
  Report Type: Spontaneous
  Country: US (occurrence: US)
  Receive Date: 20251107
  Receipt Date: 20251112
  Transmission Date: 20260118
  Serious: Yes (Life-Threatening, Hospitalization)
  Sender: BAUSCH AND LOMB
  Company Number: US-BAUSCH-BH-2025-019804

PATIENT
  Age: 38 Year
  Sex: Female

DRUGS (1)
  1. BUPROPION [Suspect]
     Active Substance: BUPROPION
     Indication: Product used for unknown indication
     Dosage: 200 PILLS
     Route: 065

REACTIONS (5)
  - Toxicity to various agents [Unknown]
  - Pulmonary embolism [Unknown]
  - Cardiac arrest [Unknown]
  - Hypotension [Unknown]
  - Overdose [Unknown]
